FAERS Safety Report 19392626 (Version 2)
Quarter: 2021Q4

REPORT INFORMATION
  Report Type: Spontaneous
  Country: US (occurrence: US)
  Receive Date: 20210608
  Receipt Date: 20211209
  Transmission Date: 20220303
  Serious: Yes (Other)
  Sender: FDA-Public Use
  Company Number: US-SA-SAC20210607000215

PATIENT
  Sex: Female

DRUGS (22)
  1. AUBAGIO [Suspect]
     Active Substance: TERIFLUNOMIDE
     Indication: Multiple sclerosis
     Dosage: 14 MG, QD
     Route: 048
     Dates: start: 20200702
  2. CYMBALTA [Concomitant]
     Active Substance: DULOXETINE HYDROCHLORIDE
     Dosage: 20 MG
  3. BIOTIN [Concomitant]
     Active Substance: BIOTIN
  4. VITAMINS NOS [Concomitant]
     Active Substance: VITAMINS
  5. ZYRTEC [Concomitant]
     Active Substance: CETIRIZINE HYDROCHLORIDE
  6. GINGER ROOT [ZINGIBER OFFICINALE ROOT] [Concomitant]
  7. ASIAN GINSENG [Concomitant]
     Active Substance: ASIAN GINSENG
  8. HERBALS\TURMERIC [Concomitant]
     Active Substance: HERBALS\TURMERIC
  9. MAGNESIUM [Concomitant]
     Active Substance: MAGNESIUM
  10. MOMETASONE FUROATE [Concomitant]
     Active Substance: MOMETASONE FUROATE
  11. CALCIUM [Concomitant]
     Active Substance: CALCIUM
  12. VITAMIN C [Concomitant]
     Active Substance: ASCORBIC ACID
  13. VITAMIN C [Concomitant]
     Active Substance: ASCORBIC ACID
     Dosage: 100MG
  14. VITAMINS [Concomitant]
     Active Substance: VITAMINS
  15. .ALPHA.-TOCOPHEROL [Concomitant]
     Active Substance: .ALPHA.-TOCOPHEROL
  16. VITAMIN D2 [Concomitant]
     Active Substance: ERGOCALCIFEROL
  17. BACLOFEN [Concomitant]
     Active Substance: BACLOFEN
  18. MODAFINIL [Concomitant]
     Active Substance: MODAFINIL
     Dosage: UNK
  19. PANTOPRAZOLE SODIUM [Concomitant]
     Active Substance: PANTOPRAZOLE SODIUM
     Dosage: UNK
  20. GINSENG [PANAX GINSENG] [Concomitant]
     Dosage: UNK
  21. VITAMIN B COMPLEX [Concomitant]
     Active Substance: CYANOCOBALAMIN\DEXPANTHENOL\NIACINAMIDE\PYRIDOXINE HYDROCHLORIDE\RIBOFLAVIN 5^-PHOSPHATE SODIUM\THIA
  22. MINERALS\VITAMINS [Concomitant]
     Active Substance: MINERALS\VITAMINS

REACTIONS (6)
  - Neoplasm malignant [Unknown]
  - Oesophagitis [Unknown]
  - Spinal disorder [Unknown]
  - Fatigue [Unknown]
  - Limb discomfort [Unknown]
  - Back pain [Unknown]

NARRATIVE: CASE EVENT DATE: 20211101
